FAERS Safety Report 9220319 (Version 1)
Quarter: 2013Q1

REPORT INFORMATION
  Report Type: Spontaneous
  Country: US (occurrence: None)
  Receive Date: 20120830
  Receipt Date: 20120830
  Transmission Date: 20140127
  Serious: Yes (Other)
  Sender: FDA-Public Use
  Company Number: PHEH2010US01260

PATIENT
  Age: 64 Year
  Sex: Female

DRUGS (2)
  1. SANDOSTATIN (OCTREOTIDE ACETATE) [Suspect]
     Indication: SHORT-BOWEL SYNDROME
     Route: 058
     Dates: start: 20090928
  2. SANDOSTATIN LAR DEPOT (OCTREOTIDE WITH POLY (D L-LACTIDE-CO-GLYCOLIDE)) UNKNOWN [Suspect]
     Indication: CARCINOID SYNDROME

REACTIONS (5)
  - Pneumonia [None]
  - Arthralgia [None]
  - Myalgia [None]
  - Cough [None]
  - Chest discomfort [None]
